FAERS Safety Report 14073733 (Version 1)
Quarter: 2017Q4

REPORT INFORMATION
  Report Type: Spontaneous
  Country: US (occurrence: US)
  Receive Date: 20171010
  Receipt Date: 20171010
  Transmission Date: 20180321
  Serious: No
  Sender: FDA-Public Use
  Company Number: US-JNJFOC-20170907569

PATIENT
  Sex: Female
  Weight: 79.38 kg

DRUGS (1)
  1. TYLENOL EXTRA STRENGTH [Suspect]
     Active Substance: ACETAMINOPHEN
     Indication: PAIN
     Dosage: DOSE: 1-2 TABLETS, ONCE AT BEDTIME
     Route: 048
     Dates: end: 20170905

REACTIONS (3)
  - Restlessness [Recovered/Resolved]
  - Incorrect dose administered [Unknown]
  - Anxiety [Recovered/Resolved]
